FAERS Safety Report 14779981 (Version 2)
Quarter: 2018Q2

REPORT INFORMATION
  Report Type: Report from Study
  Country: IT (occurrence: IT)
  Receive Date: 20180419
  Receipt Date: 20180425
  Transmission Date: 20180711
  Serious: Yes (Other)
  Sender: FDA-Public Use
  Company Number: IT-SA-2018SA106228

PATIENT
  Age: 58 Year
  Sex: Male

DRUGS (7)
  1. CLEXANE [Suspect]
     Active Substance: ENOXAPARIN SODIUM
     Route: 030
     Dates: start: 20170401, end: 20170401
  2. CLEXANE [Suspect]
     Active Substance: ENOXAPARIN SODIUM
     Route: 030
     Dates: start: 20170510, end: 20170510
  3. CARDICOR [Suspect]
     Active Substance: BISOPROLOL
     Indication: CARDIAC FAILURE
     Route: 048
     Dates: start: 20170401, end: 20170510
  4. ACETYLSALICYLIC ACID [Suspect]
     Active Substance: ASPIRIN
     Route: 048
     Dates: start: 20170401, end: 20170510
  5. LANSOX [Suspect]
     Active Substance: LANSOPRAZOLE
     Route: 048
     Dates: start: 20170401, end: 20170510
  6. PLAVIX [Suspect]
     Active Substance: CLOPIDOGREL BISULFATE
     Indication: MYOCARDIAL INFARCTION
     Route: 048
     Dates: start: 20170401, end: 20170510
  7. ORUDIS [Suspect]
     Active Substance: KETOPROFEN
     Route: 065
     Dates: start: 20170401, end: 20170510

REACTIONS (2)
  - Angioedema [Recovering/Resolving]
  - Coronary artery disease [Recovering/Resolving]

NARRATIVE: CASE EVENT DATE: 20170510
